FAERS Safety Report 6872813-8 (Version None)
Quarter: 2010Q3

REPORT INFORMATION
  Report Type: 
  Country: None (occurrence: None)
  Receive Date: 20100723
  Receipt Date: 20081204
  Transmission Date: 20110219
  Serious: Yes (Other)
  Sender: FDA-Public Use
  Company Number: US-PFIZER INC-2008090866

PATIENT
  Sex: Female
  Weight: 68.038 kg

DRUGS (1)
  1. CHANTIX [Suspect]
     Indication: SMOKING CESSATION THERAPY
     Dosage: 1 MG, 2X/DAY
     Dates: start: 20080829, end: 20081020

REACTIONS (9)
  - ABNORMAL DREAMS [None]
  - AGITATION [None]
  - FATIGUE [None]
  - NIGHTMARE [None]
  - POOR QUALITY SLEEP [None]
  - RESTLESS LEGS SYNDROME [None]
  - SCREAMING [None]
  - SUICIDAL IDEATION [None]
  - TREMOR [None]
